FAERS Safety Report 18348112 (Version 2)
Quarter: 2020Q4

REPORT INFORMATION
  Report Type: Spontaneous
  Country: US (occurrence: US)
  Receive Date: 20201006
  Receipt Date: 20201117
  Transmission Date: 20210114
  Serious: Yes (Death, Hospitalization, Other)
  Sender: FDA-Public Use
  Company Number: US-009507513-2010USA001013

PATIENT
  Sex: Female
  Weight: 54.88 kg

DRUGS (7)
  1. JANUVIA [Suspect]
     Active Substance: SITAGLIPTIN PHOSPHATE
     Indication: TYPE 2 DIABETES MELLITUS
     Dosage: 50 MILLIGRAM, QD
     Route: 048
     Dates: start: 20120216, end: 20141028
  2. PRAVASTATIN. [Concomitant]
     Active Substance: PRAVASTATIN
     Indication: BLOOD CHOLESTEROL INCREASED
     Dosage: UNK
     Dates: start: 20100111, end: 20180619
  3. TRAZODONE HYDROCHLORIDE. [Concomitant]
     Active Substance: TRAZODONE HYDROCHLORIDE
     Indication: DEPRESSION
     Dosage: UNK
     Dates: start: 20100112, end: 20180131
  4. PANTOPRAZOLE [Concomitant]
     Active Substance: PANTOPRAZOLE
     Indication: GASTROINTESTINAL DISORDER
     Dosage: UNK
     Dates: start: 20170724, end: 20171021
  5. TEMAZEPAM. [Concomitant]
     Active Substance: TEMAZEPAM
     Indication: INSOMNIA
     Dosage: UNK
     Dates: start: 20101022, end: 20171221
  6. METFORMIN [Concomitant]
     Active Substance: METFORMIN HYDROCHLORIDE
     Indication: TYPE 2 DIABETES MELLITUS
     Dosage: UNK
     Dates: start: 20081031, end: 20180514
  7. JANUMET [Suspect]
     Active Substance: METFORMIN HYDROCHLORIDE\SITAGLIPTIN PHOSPHATE
     Indication: TYPE 2 DIABETES MELLITUS
     Dosage: DOSE: 50/1000 MG, TWO TABLETS/DAY
     Route: 048
     Dates: start: 20150827, end: 20170203

REACTIONS (32)
  - Appendicectomy [Unknown]
  - Iron deficiency anaemia [Unknown]
  - Alopecia [Unknown]
  - Contrast media reaction [Unknown]
  - Diarrhoea [Recovered/Resolved]
  - Dehydration [Unknown]
  - Pain [Unknown]
  - Cancer fatigue [Unknown]
  - Pancreatic duct stenosis [Not Recovered/Not Resolved]
  - Hysterectomy [Unknown]
  - Pruritus [Unknown]
  - Arteriosclerosis [Unknown]
  - Hormone level abnormal [Unknown]
  - Osteoarthritis [Unknown]
  - Metastases to liver [Not Recovered/Not Resolved]
  - Insomnia [Unknown]
  - Taste disorder [Unknown]
  - Stomatitis [Unknown]
  - Pancreatic duct dilatation [Unknown]
  - Constipation [Unknown]
  - Hyponatraemia [Not Recovered/Not Resolved]
  - Blood magnesium decreased [Not Recovered/Not Resolved]
  - Pancreatic carcinoma stage IV [Fatal]
  - Osteonecrosis [Unknown]
  - Cholelithiasis [Unknown]
  - Dyslipidaemia [Unknown]
  - Cancer fatigue [Unknown]
  - Pancreatitis [Recovered/Resolved]
  - Splenic vein occlusion [Unknown]
  - Cancer pain [Unknown]
  - Inflammation [Unknown]
  - Dry skin [Unknown]

NARRATIVE: CASE EVENT DATE: 20170904
